FAERS Safety Report 11137369 (Version 2)
Quarter: 2015Q2

REPORT INFORMATION
  Report Type: Spontaneous
  Country: CH (occurrence: CH)
  Receive Date: 20150526
  Receipt Date: 20150528
  Transmission Date: 20150821
  Serious: Yes (Hospitalization, Other)
  Sender: FDA-Public Use
  Company Number: CH-ASTRAZENECA-2015SE50499

PATIENT
  Age: 609 Month
  Sex: Male

DRUGS (8)
  1. VOLTAREN [Interacting]
     Active Substance: DICLOFENAC SODIUM
     Route: 048
     Dates: end: 201408
  2. SORTIS [Concomitant]
     Active Substance: ATORVASTATIN
  3. TOPAMAX [Concomitant]
     Active Substance: TOPIRAMATE
  4. ATACAND [Suspect]
     Active Substance: CANDESARTAN CILEXETIL
     Route: 048
     Dates: end: 201408
  5. ALFUZOSIN [Concomitant]
     Active Substance: ALFUZOSIN
  6. ASPIRIN CARDIO [Interacting]
     Active Substance: ASPIRIN
     Route: 048
     Dates: end: 201408
  7. PANTOZOL [Concomitant]
     Active Substance: PANTOPRAZOLE SODIUM
  8. DAFALGAN [Concomitant]
     Active Substance: ACETAMINOPHEN

REACTIONS (7)
  - Diarrhoea [Unknown]
  - Hydronephrosis [Unknown]
  - Inferior vena caval occlusion [Unknown]
  - Acute prerenal failure [Recovered/Resolved]
  - Drug interaction [Unknown]
  - Dehydration [Unknown]
  - Calculus urinary [Unknown]

NARRATIVE: CASE EVENT DATE: 201408
